FAERS Safety Report 6839904-9 (Version None)
Quarter: 2010Q3

REPORT INFORMATION
  Report Type: 
  Country: None (occurrence: None)
  Receive Date: 20100714
  Receipt Date: 20100707
  Transmission Date: 20110219
  Serious: Yes (Other)
  Sender: FDA-Public Use
  Company Number: IT-TEVA-240724ISR

PATIENT
  Sex: Female

DRUGS (5)
  1. FLUOROURACIL [Suspect]
     Indication: METASTASES TO LIVER
     Route: 042
     Dates: start: 20090918, end: 20091127
  2. FLUOROURACIL [Suspect]
     Route: 042
     Dates: start: 20090918, end: 20091127
  3. IRINOTECAN HYDROCHLORIDE [Suspect]
     Indication: METASTASES TO LIVER
     Route: 042
     Dates: start: 20090918, end: 20091127
  4. CALCIUM LEVOFOLINATE [Suspect]
     Indication: METASTASES TO LIVER
     Route: 042
     Dates: start: 20090918, end: 20091127
  5. BEVACIZUMAB [Suspect]
     Indication: METASTASES TO LIVER
     Route: 042
     Dates: start: 20090918, end: 20091127

REACTIONS (3)
  - DEHYDRATION [None]
  - DYSURIA [None]
  - PYREXIA [None]
